FAERS Safety Report 12210737 (Version 1)
Quarter: 2016Q1

REPORT INFORMATION
  Report Type: Spontaneous
  Country: US (occurrence: US)
  Receive Date: 20160325
  Receipt Date: 20160325
  Transmission Date: 20160526
  Serious: Yes (Other)
  Sender: FDA-Public Use
  Company Number: US-MALLINCKRODT-T201504981

PATIENT
  Sex: Male

DRUGS (2)
  1. METHADOSE [Suspect]
     Active Substance: METHADONE HYDROCHLORIDE
     Indication: DRUG WITHDRAWAL MAINTENANCE THERAPY
     Dosage: 185 MG; DAILY
     Route: 048
     Dates: start: 2002, end: 2012
  2. METHADOSE [Suspect]
     Active Substance: METHADONE HYDROCHLORIDE
     Dosage: 110 MG; DAILY
     Route: 048
     Dates: start: 201503

REACTIONS (2)
  - Electrocardiogram QT prolonged [Not Recovered/Not Resolved]
  - Arrhythmia [Not Recovered/Not Resolved]

NARRATIVE: CASE EVENT DATE: 2006
